FAERS Safety Report 9563843 (Version 1)
Quarter: 2013Q3

REPORT INFORMATION
  Report Type: Spontaneous
  Country: US (occurrence: None)
  Receive Date: 20130926
  Receipt Date: 20130926
  Transmission Date: 20140515
  Serious: Yes (Other)
  Sender: FDA-Public Use
  Company Number: None

PATIENT
  Age: 65 Year
  Sex: Male
  Weight: 97.52 kg

DRUGS (1)
  1. ANDROGEL [Suspect]
     Indication: BLOOD TESTOSTERONE DECREASED
     Dosage: 20.25 X2; ONCE DAILY; APPLIED TO A SURFACE, USUALLY THE SKIN
     Dates: start: 20130925, end: 20131025

REACTIONS (3)
  - Blood pressure abnormal [None]
  - Anxiety [None]
  - Product quality issue [None]
